FAERS Safety Report 9998925 (Version 1)
Quarter: 2014Q1

REPORT INFORMATION
  Report Type: Spontaneous
  Country: US (occurrence: None)
  Receive Date: 20140311
  Receipt Date: 20140311
  Transmission Date: 20141002
  Serious: Yes (Hospitalization)
  Sender: FDA-Public Use
  Company Number: None

PATIENT
  Age: 10 Year
  Sex: Female
  Weight: 66.1 kg

DRUGS (4)
  1. PEG-L-ASPARAGINASE (PEGASPARGASE, ONCOSPAR) [Suspect]
  2. DEXAMETHASONE [Suspect]
  3. DOXORUBICIN HYDROCHLORIDE [Suspect]
  4. METHOTREXATE [Suspect]

REACTIONS (21)
  - Cardio-respiratory arrest [None]
  - Abnormal behaviour [None]
  - Hypotension [None]
  - Gastrointestinal haemorrhage [None]
  - Infection [None]
  - Lactic acidosis [None]
  - Platelet count decreased [None]
  - Infusion site haemorrhage [None]
  - Blood potassium increased [None]
  - Bradycardia [None]
  - Brain oedema [None]
  - Hypertension [None]
  - Pupil fixed [None]
  - Multi-organ disorder [None]
  - Liver disorder [None]
  - Renal disorder [None]
  - Pancreatic disorder [None]
  - Coagulopathy [None]
  - Pulmonary haemorrhage [None]
  - Bradyarrhythmia [None]
  - Ventricular arrhythmia [None]
